FAERS Safety Report 24156262 (Version 5)
Quarter: 2024Q4

REPORT INFORMATION
  Report Type: Report from Study
  Country: US (occurrence: US)
  Receive Date: 20240731
  Receipt Date: 20241028
  Transmission Date: 20250114
  Serious: Yes (Other)
  Sender: BAYER HEALTHCARE PHARMACEUTICALS INC.
  Company Number: US-BAYER-2024A094906

PATIENT
  Age: 75 Year
  Sex: Female

DRUGS (4)
  1. ADEMPAS [Suspect]
     Active Substance: RIOCIGUAT
     Indication: Pulmonary arterial hypertension
     Dosage: 0.5 MG, TID
     Route: 048
     Dates: start: 202406
  2. ADEMPAS [Suspect]
     Active Substance: RIOCIGUAT
     Indication: Pulmonary arterial hypertension
     Dosage: 1 MG, TID
  3. ADEMPAS [Suspect]
     Active Substance: RIOCIGUAT
     Indication: Pulmonary arterial hypertension
     Dosage: 0.5 MG, TID
     Route: 048
     Dates: start: 202407
  4. ADEMPAS [Suspect]
     Active Substance: RIOCIGUAT
     Indication: Pulmonary arterial hypertension
     Dosage: 1.5 MG, TID
     Route: 048
     Dates: start: 202409

REACTIONS (17)
  - Hypotension [Not Recovered/Not Resolved]
  - Blood pressure fluctuation [None]
  - Blood pressure decreased [None]
  - Cystitis [None]
  - Anxiety [None]
  - Cough [None]
  - Product dose omission in error [None]
  - Dyspnoea exertional [Recovered/Resolved]
  - Feeling abnormal [Recovered/Resolved]
  - Oedema peripheral [Not Recovered/Not Resolved]
  - Product dose omission issue [None]
  - Dizziness [None]
  - Mood altered [None]
  - Peripheral swelling [None]
  - Joint swelling [None]
  - Product dose omission issue [None]
  - Memory impairment [None]

NARRATIVE: CASE EVENT DATE: 20240101
